FAERS Safety Report 23718393 (Version 2)
Quarter: 2024Q2

REPORT INFORMATION
  Report Type: Spontaneous
  Country: KR (occurrence: KR)
  Receive Date: 20240408
  Receipt Date: 20240412
  Transmission Date: 20240715
  Serious: Yes (Hospitalization)
  Sender: FDA-Public Use
  Company Number: KR-TAKEDA-2024TUS031118

PATIENT
  Age: 86 Year
  Sex: Male

DRUGS (7)
  1. PANTOPRAZOLE SODIUM [Suspect]
     Active Substance: PANTOPRAZOLE SODIUM
     Indication: Cerebral infarction
     Dosage: 1 DOSAGE FORM, QD
     Route: 048
     Dates: start: 20190430
  2. DONEPEZIL HYDROCHLORIDE [Suspect]
     Active Substance: DONEPEZIL HYDROCHLORIDE
     Indication: Cerebral infarction
     Dosage: 1 DOSAGE FORM, QD
     Route: 048
     Dates: start: 20190430
  3. AMLODIPINE BESYLATE [Suspect]
     Active Substance: AMLODIPINE BESYLATE
     Indication: Cerebral infarction
     Dosage: 1 DOSAGE FORM, QD
     Route: 048
     Dates: start: 20190430
  4. ATORVASTATIN CALCIUM [Suspect]
     Active Substance: ATORVASTATIN CALCIUM
     Indication: Cerebral infarction
     Dosage: 1 DOSAGE FORM, QD
     Route: 048
     Dates: start: 20190430
  5. ESCITALOPRAM OXALATE [Suspect]
     Active Substance: ESCITALOPRAM OXALATE
     Indication: Cerebral infarction
     Dosage: 1 DOSAGE FORM, QD
     Route: 048
     Dates: start: 20190430
  6. METFORMIN HYDROCHLORIDE [Suspect]
     Active Substance: METFORMIN HYDROCHLORIDE
     Indication: Cerebral infarction
     Dosage: 1 DOSAGE FORM, QD
     Route: 048
     Dates: start: 20190430
  7. OXIRACETAM [Suspect]
     Active Substance: OXIRACETAM
     Indication: Cerebral infarction
     Dosage: 800 MILLIGRAM, Q12H
     Route: 048
     Dates: start: 20190430

REACTIONS (3)
  - Purpura [Recovering/Resolving]
  - Oedema peripheral [Recovering/Resolving]
  - Off label use [Unknown]

NARRATIVE: CASE EVENT DATE: 20190916
